FAERS Safety Report 6593211-0 (Version None)
Quarter: 2010Q1

REPORT INFORMATION
  Report Type: 
  Country: None (occurrence: None)
  Receive Date: 20100222
  Receipt Date: 20100217
  Transmission Date: 20100710
  Serious: Yes (Life-Threatening, Hospitalization, Other)
  Sender: FDA-Public Use
  Company Number: PHHY2010SE09295

PATIENT
  Sex: Male

DRUGS (1)
  1. LEPONEX [Suspect]

REACTIONS (6)
  - CATATONIA [None]
  - CHOLINERGIC SYNDROME [None]
  - COGWHEEL RIGIDITY [None]
  - HYPERHIDROSIS [None]
  - HYPERREFLEXIA [None]
  - MUSCULOSKELETAL STIFFNESS [None]
